FAERS Safety Report 12098665 (Version 1)
Quarter: 2016Q1

REPORT INFORMATION
  Report Type: Spontaneous
  Country: US (occurrence: US)
  Receive Date: 20160222
  Receipt Date: 20160222
  Transmission Date: 20160526
  Serious: Yes (Death, Other)
  Sender: FDA-Public Use
  Company Number: US-THE MEDICINES COMPANY-US-MDCO-16-00036

PATIENT
  Age: 66 Year
  Sex: Male

DRUGS (7)
  1. KENGREAL [Suspect]
     Active Substance: CANGRELOR
     Indication: PERCUTANEOUS CORONARY INTERVENTION
     Dosage: NOT REPORTED
     Route: 041
     Dates: start: 20160122
  2. ANGIOMAX [Suspect]
     Active Substance: BIVALIRUDIN
     Indication: PERCUTANEOUS CORONARY INTERVENTION
     Dosage: NOT REPORTED
     Dates: start: 20160122
  3. DILAUDID [Concomitant]
     Active Substance: HYDROMORPHONE HYDROCHLORIDE
     Indication: PERCUTANEOUS CORONARY INTERVENTION
     Dosage: NOT REPORTED
     Dates: start: 20160122
  4. NITROPRUSSIDE [Concomitant]
     Active Substance: NITROPRUSSIDE
     Indication: PERCUTANEOUS CORONARY INTERVENTION
     Dosage: NOT REPORTED
     Dates: start: 20160122
  5. DOPAMINE [Concomitant]
     Active Substance: DOPAMINE\DOPAMINE HYDROCHLORIDE
     Indication: PERCUTANEOUS CORONARY INTERVENTION
     Dosage: NOT REPORTED
     Dates: start: 20160122
  6. LEVOPHED [Concomitant]
     Active Substance: NOREPINEPHRINE BITARTRATE
     Indication: PERCUTANEOUS CORONARY INTERVENTION
     Dosage: NOT REPORTED
     Dates: start: 20160122
  7. INTEGRILLIN [Concomitant]
     Indication: PERCUTANEOUS CORONARY INTERVENTION
     Dosage: NOT REPORTED
     Route: 022
     Dates: start: 20160122

REACTIONS (5)
  - Respiratory failure [Fatal]
  - Traumatic haemothorax [Unknown]
  - Lung infiltration [Unknown]
  - Ejection fraction decreased [Unknown]
  - Pulmonary haemorrhage [Unknown]

NARRATIVE: CASE EVENT DATE: 20160122
